FAERS Safety Report 21637414 (Version 1)
Quarter: 2022Q4

REPORT INFORMATION
  Report Type: Report from Study
  Country: US (occurrence: US)
  Receive Date: 20221124
  Receipt Date: 20221124
  Transmission Date: 20230113
  Serious: No
  Sender: FDA-Public Use
  Company Number: US-ABBVIE-22K-163-4476735-00

PATIENT
  Sex: Female

DRUGS (3)
  1. HUMIRA [Suspect]
     Active Substance: ADALIMUMAB
     Indication: Psoriatic arthropathy
     Dosage: STRENGTH: 40MG
     Route: 058
     Dates: start: 20211001, end: 20220624
  2. HUMIRA [Suspect]
     Active Substance: ADALIMUMAB
     Dosage: THERAPY DISCONTINUED IN 2022?STRENGTH: 40MG
     Route: 058
     Dates: start: 20220708
  3. HUMIRA [Suspect]
     Active Substance: ADALIMUMAB
     Dosage: STRENGTH: 40MG
     Route: 058
     Dates: start: 20221016

REACTIONS (13)
  - Impaired self-care [Not Recovered/Not Resolved]
  - Therapeutic product effect decreased [Unknown]
  - General physical condition abnormal [Unknown]
  - Herpes zoster [Unknown]
  - Grip strength decreased [Not Recovered/Not Resolved]
  - Pain [Unknown]
  - COVID-19 [Unknown]
  - Oral herpes [Unknown]
  - Injection site erythema [Recovered/Resolved]
  - Mobility decreased [Unknown]
  - Joint range of motion decreased [Unknown]
  - Pain [Unknown]
  - Loss of personal independence in daily activities [Unknown]

NARRATIVE: CASE EVENT DATE: 20220101
